FAERS Safety Report 20472483 (Version 1)
Quarter: 2022Q1

REPORT INFORMATION
  Report Type: Report from Study
  Country: FR (occurrence: None)
  Receive Date: 20220215
  Receipt Date: 20220215
  Transmission Date: 20220423
  Serious: Yes (Hospitalization)
  Sender: FDA-Public Use
  Company Number: FR-Merck Healthcare KGaA-9298668

PATIENT
  Sex: Female

DRUGS (2)
  1. CHORIOGONADOTROPIN ALFA [Suspect]
     Active Substance: CHORIOGONADOTROPIN ALFA
     Indication: In vitro fertilisation
     Dosage: OVITRELLE CLICKS
  2. PROGESTERONE [Suspect]
     Active Substance: PROGESTERONE
     Indication: Product used for unknown indication

REACTIONS (7)
  - Gait disturbance [Unknown]
  - Ovarian hyperstimulation syndrome [Recovering/Resolving]
  - Pleural effusion [Recovering/Resolving]
  - Pulmonary pain [Recovering/Resolving]
  - Dyspnoea [Recovering/Resolving]
  - Human chorionic gonadotropin decreased [Unknown]
  - Poor quality sleep [Unknown]

NARRATIVE: CASE EVENT DATE: 20220101
